FAERS Safety Report 11649677 (Version 1)
Quarter: 2015Q4

REPORT INFORMATION
  Report Type: Spontaneous
  Country: FR (occurrence: FR)
  Receive Date: 20151021
  Receipt Date: 20151021
  Transmission Date: 20160304
  Serious: Yes (Death, Hospitalization, Other)
  Sender: FDA-Public Use
  Company Number: FR-ELI_LILLY_AND_COMPANY-FR201510004018

PATIENT
  Sex: Female
  Weight: 101.6 kg

DRUGS (8)
  1. OFLOCET                            /00731801/ [Suspect]
     Active Substance: OFLOXACIN
     Indication: KLEBSIELLA INFECTION
     Dosage: 200 MG, BID
     Route: 065
     Dates: start: 20150707, end: 20150717
  2. ESOMEPRAZOLE [Concomitant]
     Active Substance: ESOMEPRAZOLE
     Dosage: 20 MG, EACH EVENING
     Route: 065
  3. IODINE [Concomitant]
     Active Substance: IODINE
     Indication: SCAN BRAIN
     Dosage: UNK, UNKNOWN
     Route: 065
     Dates: start: 20150703
  4. GEMZAR [Suspect]
     Active Substance: GEMCITABINE HYDROCHLORIDE
     Indication: BILE DUCT CANCER
     Dosage: UNK, UNKNOWN
     Route: 042
  5. OXALIPLATINE HOSPIRA [Suspect]
     Active Substance: OXALIPLATIN
     Indication: BILE DUCT CANCER
     Dosage: UNK, UNKNOWN
     Route: 065
  6. PRETERAX                           /01421201/ [Suspect]
     Active Substance: INDAPAMIDE\PERINDOPRIL
     Indication: PRODUCT USED FOR UNKNOWN INDICATION
     Dosage: 1 DF, EACH MORNING
     Route: 065
  7. GENTAMICINE PANPHARMA [Suspect]
     Active Substance: GENTAMICIN
     Indication: PRODUCT USED FOR UNKNOWN INDICATION
     Dosage: 400 MG, UNKNOWN
     Route: 065
     Dates: start: 20150711, end: 20150714
  8. STILNOX [Concomitant]
     Active Substance: ZOLPIDEM TARTRATE
     Dosage: 10 MG, EACH EVENING
     Route: 065

REACTIONS (19)
  - Hepatomegaly [Unknown]
  - Oedema [Unknown]
  - C-reactive protein increased [Unknown]
  - Alanine aminotransferase increased [Unknown]
  - Blood bilirubin increased [Unknown]
  - Abdominal pain [Recovered/Resolved]
  - Ascites [Unknown]
  - Incorrect drug administration rate [Unknown]
  - Biliary abscess [Unknown]
  - Hepatic neoplasm [Unknown]
  - Dilatation intrahepatic duct acquired [Unknown]
  - Off label use [Unknown]
  - Aspartate aminotransferase increased [Unknown]
  - Pleural effusion [Unknown]
  - Atelectasis [Unknown]
  - Weight increased [Unknown]
  - Klebsiella infection [Unknown]
  - Acute kidney injury [Fatal]
  - Blood alkaline phosphatase increased [Unknown]

NARRATIVE: CASE EVENT DATE: 2015
